FAERS Safety Report 10023538 (Version 1)
Quarter: 2014Q1

REPORT INFORMATION
  Report Type: Spontaneous
  Country: GB (occurrence: GB)
  Receive Date: 20140320
  Receipt Date: 20140320
  Transmission Date: 20141002
  Serious: Yes (Hospitalization)
  Sender: FDA-Public Use
  Company Number: GB-ACCORD-022548

PATIENT
  Age: 79 Year
  Sex: Female
  Weight: 92 kg

DRUGS (9)
  1. ALLOPURINOL [Suspect]
     Indication: GOUT
     Dosage: IN THE MORNING
     Route: 048
     Dates: start: 20140122, end: 20140214
  2. ATENOLOL/ATENOLOL HYDROCHLORIDE [Concomitant]
  3. BENDROFLUMETHIAZIDE [Concomitant]
  4. PRAVASTATIN [Concomitant]
  5. LEVOTHYROXINE [Concomitant]
  6. FLUCLOXACILLIN [Concomitant]
     Dates: start: 20140122
  7. PARACETAMOL [Concomitant]
  8. ASPIRIN [Concomitant]
  9. LIDOCAINE [Concomitant]

REACTIONS (5)
  - Rash maculo-papular [Recovering/Resolving]
  - Feeling hot [Recovering/Resolving]
  - Dry skin [Recovering/Resolving]
  - Rash pruritic [Recovering/Resolving]
  - Vasculitic rash [Recovering/Resolving]
